FAERS Safety Report 4890868-7 (Version None)
Quarter: 2006Q1

REPORT INFORMATION
  Report Type: 
  Country: None (occurrence: None)
  Receive Date: 20060125
  Receipt Date: 20051212
  Transmission Date: 20060701
  Serious: Yes (Hospitalization)
  Sender: FDA-Public Use
  Company Number: PHBS2005JP18412

PATIENT
  Age: 53 Year
  Sex: Male

DRUGS (8)
  1. SYMMETREL [Suspect]
     Indication: CEREBRAL INFARCTION
     Dosage: 50 MG/DAY
     Route: 048
     Dates: end: 20051209
  2. DIOVAN [Suspect]
     Dosage: 80 MG/D
     Route: 048
     Dates: end: 20051209
  3. LASIX [Suspect]
     Dosage: 40 MG/D
     Route: 048
     Dates: end: 20051209
  4. CARDENALIN [Suspect]
     Dosage: 2 MG/D
     Route: 048
     Dates: end: 20051209
  5. LUVOX [Suspect]
     Dosage: 50 MG/D
     Route: 048
  6. SELBEX [Suspect]
     Dosage: 150 MG/D
     Route: 048
     Dates: end: 20051209
  7. TAGAMET [Suspect]
     Dosage: 400 MG/D
     Route: 048
     Dates: end: 20051209
  8. BUP-4 [Suspect]
     Dosage: 20 MG/D
     Route: 048
     Dates: end: 20051209

REACTIONS (3)
  - CONFUSIONAL STATE [None]
  - DRUG LEVEL INCREASED [None]
  - RENAL FAILURE [None]
